FAERS Safety Report 5614898-2 (Version None)
Quarter: 2008Q1

REPORT INFORMATION
  Report Type: 
  Country: None (occurrence: None)
  Receive Date: 20080206
  Receipt Date: 20080128
  Transmission Date: 20080703
  Serious: Yes (Life-Threatening, Hospitalization)
  Sender: FDA-Public Use
  Company Number: DE-BAYER-200811681GPV

PATIENT
  Age: 34 Year
  Sex: Female
  Weight: 54 kg

DRUGS (1)
  1. MIRENA [Suspect]
     Indication: DRUG USE FOR UNKNOWN INDICATION
     Route: 015
     Dates: start: 20080109, end: 20080111

REACTIONS (8)
  - ABDOMINAL INFECTION [None]
  - ABDOMINAL PAIN LOWER [None]
  - ABDOMINAL REBOUND TENDERNESS [None]
  - BETA HAEMOLYTIC STREPTOCOCCAL INFECTION [None]
  - PELVIC PERITONEAL ADHESIONS [None]
  - PROCEDURAL PAIN [None]
  - PYREXIA [None]
  - UTERINE RUPTURE [None]
